FAERS Safety Report 6230694-X (Version None)
Quarter: 2009Q2

REPORT INFORMATION
  Report Type: 
  Country: None (occurrence: None)
  Receive Date: 20090616
  Receipt Date: 20090611
  Transmission Date: 20091009
  Serious: Yes (Other)
  Sender: FDA-Public Use
  Company Number: IT-BRISTOL-MYERS SQUIBB COMPANY-14631352

PATIENT
  Age: 66 Year
  Sex: Male

DRUGS (12)
  1. BARACLUDE [Suspect]
     Indication: HEPATIC NEOPLASM MALIGNANT
     Route: 048
     Dates: start: 20081125, end: 20090608
  2. CARVEDILOL [Concomitant]
  3. FUROSEMIDE [Concomitant]
  4. METFORMIN HYDROCHLORIDE [Concomitant]
  5. POTASSIUM CHLORIDE [Concomitant]
  6. DUTASTERIDE [Concomitant]
  7. URSODIOL [Concomitant]
  8. OMEPRAZOLE [Concomitant]
  9. ACENOCOUMAROL [Concomitant]
  10. TAMSULOSIN HCL [Concomitant]
  11. GLIMEPIRIDE [Concomitant]
  12. RAMIPRIL [Concomitant]

REACTIONS (1)
  - RENAL FAILURE ACUTE [None]
